FAERS Safety Report 8373285-7 (Version None)
Quarter: 2012Q2

REPORT INFORMATION
  Report Type: 
  Country: None (occurrence: None)
  Receive Date: 20120521
  Receipt Date: 20110406
  Transmission Date: 20120825
  Serious: Yes (Other)
  Sender: FDA-Public Use
  Company Number: US-TEVA-2011001687

PATIENT
  Age: 71 Year
  Sex: Male
  Weight: 68.1 kg

DRUGS (2)
  1. RITUXAN [Concomitant]
     Indication: NON-HODGKIN'S LYMPHOMA
     Dates: start: 20110301
  2. TREANDA [Suspect]
     Indication: NON-HODGKIN'S LYMPHOMA
     Route: 042
     Dates: start: 20110101, end: 20110301

REACTIONS (9)
  - PYREXIA [None]
  - DIARRHOEA [None]
  - CHILLS [None]
  - NAUSEA [None]
  - SKIN REACTION [None]
  - TREMOR [None]
  - RASH [None]
  - VEIN DISORDER [None]
  - FUNCTIONAL GASTROINTESTINAL DISORDER [None]
